FAERS Safety Report 6240174-3 (Version None)
Quarter: 2009Q2

REPORT INFORMATION
  Report Type: 
  Country: None (occurrence: None)
  Receive Date: 20090623
  Receipt Date: 20090616
  Transmission Date: 20091009
  Serious: Yes (Other)
  Sender: FDA-Public Use
  Company Number: US-JNJFOC-20090605652

PATIENT
  Sex: Female

DRUGS (8)
  1. TOPAMAX [Suspect]
     Indication: MIGRAINE
     Dosage: 400 MG TOTAL
     Route: 048
  2. FLEXERIL [Concomitant]
     Route: 048
  3. SYNTHROID [Concomitant]
     Route: 048
  4. DESERNIL [Concomitant]
     Route: 048
  5. AMBIEN [Concomitant]
     Route: 048
  6. PROZAC [Concomitant]
     Route: 048
  7. NEXIUM [Concomitant]
     Route: 048
  8. LIPITOR [Concomitant]
     Route: 048

REACTIONS (2)
  - CRYSTAL URINE PRESENT [None]
  - NEPHROLITHIASIS [None]
